FAERS Safety Report 18430910 (Version 1)
Quarter: 2020Q4

REPORT INFORMATION
  Report Type: Spontaneous
  Country: US (occurrence: US)
  Receive Date: 20201027
  Receipt Date: 20201027
  Transmission Date: 20210114
  Serious: Yes (Hospitalization)
  Sender: FDA-Public Use
  Company Number: None

PATIENT
  Age: 69 Year
  Sex: Male

DRUGS (1)
  1. IBUPROFEN (IBUPROFEN 400MG TAB) [Suspect]
     Active Substance: IBUPROFEN
     Indication: PAIN
     Route: 048
     Dates: start: 20200721, end: 20200820

REACTIONS (9)
  - Gastritis [None]
  - Colitis ischaemic [None]
  - Blood alcohol increased [None]
  - Gastrointestinal haemorrhage [None]
  - Peptic ulcer [None]
  - Colitis [None]
  - Gastric varices haemorrhage [None]
  - Abdominal pain lower [None]
  - Blood lactic acid increased [None]

NARRATIVE: CASE EVENT DATE: 20200902
